FAERS Safety Report 6433396-X (Version None)
Quarter: 2009Q4

REPORT INFORMATION
  Report Type: 
  Country: None (occurrence: None)
  Receive Date: 20091106
  Receipt Date: 20091106
  Transmission Date: 20100525
  Serious: Yes (Other)
  Sender: FDA-Public Use
  Company Number: None

PATIENT
  Age: 17 Year
  Sex: Female
  Weight: 58.0604 kg

DRUGS (1)
  1. AMPICILLIN [Suspect]
     Indication: POST PROCEDURAL INFECTION
     Dosage: 2 G 6 H IV
     Route: 042
     Dates: start: 20090911, end: 20091002

REACTIONS (1)
  - RASH ERYTHEMATOUS [None]
